FAERS Safety Report 17546466 (Version 1)
Quarter: 2020Q1

REPORT INFORMATION
  Report Type: Spontaneous
  Country: GB (occurrence: GB)
  Receive Date: 20200316
  Receipt Date: 20200316
  Transmission Date: 20200409
  Serious: Yes (Other)
  Sender: FDA-Public Use
  Company Number: GB-BAYER-2020-039771

PATIENT
  Age: 42 Year
  Sex: Female
  Weight: 67.12 kg

DRUGS (3)
  1. CLARITHROMYCIN. [Suspect]
     Active Substance: CLARITHROMYCIN
     Dosage: 1000 MG, QD
     Route: 048
     Dates: start: 20200217
  2. METRONIDAZOLE. [Suspect]
     Active Substance: METRONIDAZOLE
     Route: 048
     Dates: start: 20200216
  3. KYLEENA [Suspect]
     Active Substance: LEVONORGESTREL
     Dosage: 17.5?G PER DAY CONT
     Route: 015
     Dates: start: 20200211

REACTIONS (10)
  - Fatigue [Not Recovered/Not Resolved]
  - Hyperhidrosis [Not Recovered/Not Resolved]
  - Abdominal pain [Not Recovered/Not Resolved]
  - Breast tenderness [Not Recovered/Not Resolved]
  - Myalgia [Not Recovered/Not Resolved]
  - Neck pain [Not Recovered/Not Resolved]
  - Headache [Not Recovered/Not Resolved]
  - Back pain [Not Recovered/Not Resolved]
  - Abdominal distension [Not Recovered/Not Resolved]
  - Vaginal infection [Not Recovered/Not Resolved]

NARRATIVE: CASE EVENT DATE: 20200211
